FAERS Safety Report 21140581 (Version 1)
Quarter: 2022Q3

REPORT INFORMATION
  Report Type: Spontaneous
  Country: CN (occurrence: CN)
  Receive Date: 20220728
  Receipt Date: 20220728
  Transmission Date: 20221027
  Serious: Yes (Other)
  Sender: FDA-Public Use
  Company Number: None

PATIENT
  Age: 66 Year
  Sex: Male
  Weight: 56.1 kg

DRUGS (8)
  1. CYCLOPHOSPHAMIDE [Suspect]
     Active Substance: CYCLOPHOSPHAMIDE
     Indication: Diffuse large B-cell lymphoma
     Dosage: QD, 600 MG, CYCLOPHOSPHAMIDE INJECTION WAS DILUTED WITH 100 ML OF 0.9% SODIUM CHLORIDE INJECTION
     Route: 041
     Dates: start: 20220706, end: 20220706
  2. SODIUM CHLORIDE [Suspect]
     Active Substance: SODIUM CHLORIDE
     Indication: Medication dilution
     Dosage: CYCLOPHOSPHAMIDE INJECTION WAS DILUTED WITH 100 ML OF 0.9% SODIUM CHLORIDE INJECTION
     Route: 041
     Dates: start: 20220706, end: 20220706
  3. SODIUM CHLORIDE [Suspect]
     Active Substance: SODIUM CHLORIDE
     Dosage: QD, 1 MG, VINCRISTINE SULFATE INJECTION DILUTED WITH 100 ML OF 0.9% SODIUM CHLORIDE INJECTION
     Route: 041
     Dates: start: 20220706, end: 20220706
  4. DEXTROSE MONOHYDRATE [Suspect]
     Active Substance: DEXTROSE MONOHYDRATE
     Indication: Medication dilution
     Dosage: QD, 100 MG, RITUXIMAB INJECTION WAS DILUTED WITH 100 ML 5 % GLUCOSE INJECTION
     Route: 041
     Dates: start: 20220705, end: 20220705
  5. DEXTROSE MONOHYDRATE [Suspect]
     Active Substance: DEXTROSE MONOHYDRATE
     Dosage: QD, 40 MG EPIRUBICIN HYDROCHLORIDE INJECTION WAS DILUTED WITH 100 ML OF 5% GLUCOSE INJECTION
     Route: 041
     Dates: start: 20220706, end: 20220706
  6. RITUXIMAB [Suspect]
     Active Substance: RITUXIMAB
     Indication: Diffuse large B-cell lymphoma
     Dosage: QD, 100 MG, RITUXIMAB INJECTION WAS DILUTED WITH 100 ML 5 % GLUCOSE INJECTION
     Route: 041
     Dates: start: 20220705, end: 20220705
  7. EPIRUBICIN HYDROCHLORIDE [Suspect]
     Active Substance: EPIRUBICIN HYDROCHLORIDE
     Indication: Diffuse large B-cell lymphoma
     Dosage: QD, 40 MG EPIRUBICIN HYDROCHLORIDE INJECTION  WAS DILUTED WITH 100 ML OF 5% GLUCOSE INJECTION
     Route: 041
     Dates: start: 20220706, end: 20220706
  8. VINCRISTINE SULFATE [Suspect]
     Active Substance: VINCRISTINE SULFATE
     Indication: Diffuse large B-cell lymphoma
     Dosage: QD, 1 MG, VINCRISTINE SULFATE INJECTION DILUTED WITH 100 ML OF 0.9% SODIUM CHLORIDE INJECTION
     Route: 041
     Dates: start: 20220706, end: 20220706

REACTIONS (1)
  - Myelosuppression [Recovering/Resolving]

NARRATIVE: CASE EVENT DATE: 20220710
